FAERS Safety Report 10254816 (Version 1)
Quarter: 2014Q2

REPORT INFORMATION
  Report Type: Spontaneous
  Country: GB (occurrence: GB)
  Receive Date: 20140624
  Receipt Date: 20140624
  Transmission Date: 20141212
  Serious: Yes (Other)
  Sender: FDA-Public Use
  Company Number: GB-BAYER-2014-090845

PATIENT
  Age: 41 Year
  Sex: Female
  Weight: 57 kg

DRUGS (6)
  1. MIRENA [Suspect]
     Indication: CONTRACEPTION
     Dosage: 20 MCG/24HR, CONT
     Route: 015
     Dates: start: 20120912, end: 20140609
  2. 5-HYDROXYTRYPTOPHAN [Concomitant]
  3. CIPROFLOXACIN [Concomitant]
  4. CO CODAMOL [Concomitant]
  5. IBUPROFEN [Concomitant]
  6. TRIMETHOPRIM [Concomitant]

REACTIONS (11)
  - Abdominal pain [Unknown]
  - Decreased appetite [Unknown]
  - Back pain [Unknown]
  - Feeling hot [Unknown]
  - Malaise [Unknown]
  - Groin pain [Unknown]
  - Hypoaesthesia [Unknown]
  - Abdominal pain lower [Unknown]
  - Nausea [Unknown]
  - Pain in extremity [Unknown]
  - Arthralgia [Not Recovered/Not Resolved]
